FAERS Safety Report 8896373 (Version 1)
Quarter: 2012Q4

REPORT INFORMATION
  Report Type: Spontaneous
  Country: US (occurrence: None)
  Receive Date: 20121109
  Receipt Date: 20121109
  Transmission Date: 20130627
  Serious: Yes (Disabling)
  Sender: FDA-Public Use
  Company Number: None

PATIENT
  Age: 52 Year
  Sex: Female
  Weight: 63.5 kg

DRUGS (1)
  1. METHYLPREDNISOLONE ACETATE [Suspect]

REACTIONS (6)
  - Nausea [None]
  - Vomiting [None]
  - Migraine [None]
  - Musculoskeletal stiffness [None]
  - Photosensitivity reaction [None]
  - Oedema mucosal [None]
